FAERS Safety Report 4859688-3 (Version None)
Quarter: 2005Q4

REPORT INFORMATION
  Report Type: 
  Country: None (occurrence: None)
  Receive Date: 20051219
  Receipt Date: 20051211
  Transmission Date: 20060501
  Serious: Yes (Hospitalization)
  Sender: FDA-Public Use
  Company Number: US-AVENTIS-200520392US

PATIENT
  Sex: Male

DRUGS (1)
  1. LOVENOX [Suspect]
     Indication: SURGERY
     Dosage: DOSE: UNK

REACTIONS (2)
  - PYREXIA [None]
  - WOUND INFECTION [None]
